FAERS Safety Report 12454420 (Version 1)
Quarter: 2016Q2

REPORT INFORMATION
  Report Type: Spontaneous
  Country: None (occurrence: None)
  Receive Date: 20160609
  Receipt Date: 20160609
  Transmission Date: 20160815
  Serious: Yes (Other)
  Sender: FDA-Public Use
  Company Number: None

PATIENT
  Age: 61 Year
  Sex: Female
  Weight: 138.71 kg

DRUGS (1)
  1. PRALUENT [Suspect]
     Active Substance: ALIROCUMAB
     Indication: LOW DENSITY LIPOPROTEIN INCREASED
     Dates: start: 20160601

REACTIONS (7)
  - Pruritus [None]
  - Hyperaesthesia [None]
  - Skin burning sensation [None]
  - Paraesthesia oral [None]
  - Rhinorrhoea [None]
  - Skin warm [None]
  - Sunburn [None]

NARRATIVE: CASE EVENT DATE: 20160607
